FAERS Safety Report 20532003 (Version 2)
Quarter: 2023Q1

REPORT INFORMATION
  Report Type: Report from Study
  Country: US (occurrence: US)
  Receive Date: 20220301
  Receipt Date: 20230207
  Transmission Date: 20230417
  Serious: No
  Sender: FDA-Public Use
  Company Number: US-AMRYT PHARMACEUTICALS DAC-AEGR005144

PATIENT
  Age: 20 Year
  Sex: Male
  Weight: 35.4 kg

DRUGS (16)
  1. METRELEPTIN [Suspect]
     Active Substance: METRELEPTIN
     Indication: Congenital generalised lipodystrophy
     Dosage: 1.8 MILLIGRAM, BID
     Route: 058
     Dates: start: 20150723
  2. METRELEPTIN [Suspect]
     Active Substance: METRELEPTIN
     Dosage: 2.6 MILLIGRAM, QD
     Route: 058
     Dates: start: 20170717
  3. METRELEPTIN [Suspect]
     Active Substance: METRELEPTIN
     Dosage: 3.4 MILLIGRAM, QD
     Route: 058
     Dates: start: 20190623
  4. METRELEPTIN [Suspect]
     Active Substance: METRELEPTIN
     Dosage: 3.75 MILLIGRAM (0.75ML OR 75 UNITS), QD
     Route: 058
     Dates: start: 20210617
  5. METRELEPTIN [Suspect]
     Active Substance: METRELEPTIN
     Dosage: 1.8 MILLIGRAM, BID
     Dates: start: 20151205
  6. INVOKANA [Suspect]
     Active Substance: CANAGLIFLOZIN
     Indication: Diabetes mellitus
     Dosage: 100 MILLIGRAM, QD
     Route: 048
     Dates: end: 202110
  7. INVOKANA [Suspect]
     Active Substance: CANAGLIFLOZIN
     Indication: Hypertension
     Dosage: 300 MILLIGRAM, QD
     Route: 048
     Dates: start: 2021
  8. CHOLECALCIFEROL [Concomitant]
     Active Substance: CHOLECALCIFEROL
     Indication: Vitamin D deficiency
     Dosage: 1000 INTERNATIONAL UNIT, QD
     Route: 048
     Dates: start: 2012
  9. ENALAPRIL [Concomitant]
     Active Substance: ENALAPRIL
     Indication: Proteinuria
     Dosage: 10 MILLIGRAM, QD
     Route: 048
  10. VITAMINS NOS [Concomitant]
     Active Substance: VITAMINS
     Indication: Product used for unknown indication
     Dosage: 1CHEWABLE TABLET, QD
     Route: 048
  11. OMEGA-3-ACID ETHYL ESTER [Concomitant]
     Active Substance: OMEGA-3-ACID ETHYL ESTERS
     Indication: Product used for unknown indication
     Dosage: 1 GRAM, QD
     Route: 048
  12. METFORMIN [Concomitant]
     Active Substance: METFORMIN HYDROCHLORIDE
     Indication: Diabetes mellitus
     Dosage: 500 MILLIGRAM, QD
     Dates: end: 202005
  13. METFORMIN [Concomitant]
     Active Substance: METFORMIN HYDROCHLORIDE
     Dosage: 1000 MILLIGRAM, BID
     Route: 048
     Dates: start: 202005
  14. VITAMIN D NOS [Concomitant]
     Active Substance: VITAMIN D NOS
     Indication: Product used for unknown indication
  15. BACTERIOSTATIC WATER [Concomitant]
     Active Substance: WATER
     Indication: Product used for unknown indication
  16. FISH OIL [Concomitant]
     Active Substance: FISH OIL
     Indication: Hypertriglyceridaemia
     Dosage: UNK MILLIGRAM, QD
     Route: 048
     Dates: start: 2021

REACTIONS (4)
  - Migraine [Recovered/Resolved]
  - Dehydration [Unknown]
  - Hypothyroidism [Not Recovered/Not Resolved]
  - Weight decreased [Not Recovered/Not Resolved]

NARRATIVE: CASE EVENT DATE: 20200501
